FAERS Safety Report 6383591-3 (Version None)
Quarter: 2009Q4

REPORT INFORMATION
  Report Type: 
  Country: None (occurrence: None)
  Receive Date: 20091001
  Receipt Date: 20090924
  Transmission Date: 20100525
  Serious: Yes (Death)
  Sender: FDA-Public Use
  Company Number: BR-ROCHE-658833

PATIENT
  Age: 38 Year
  Sex: Female

DRUGS (1)
  1. TAMIFLU [Suspect]
     Dosage: STOP DATE REPORTED AS AUG 2009
     Route: 065
     Dates: start: 20090823, end: 20090824

REACTIONS (1)
  - DEATH [None]
